FAERS Safety Report 6143354-0 (Version None)
Quarter: 2009Q2

REPORT INFORMATION
  Report Type: 
  Country: None (occurrence: None)
  Receive Date: 20090403
  Receipt Date: 20090331
  Transmission Date: 20091009
  Serious: Yes (Other)
  Sender: FDA-Public Use
  Company Number: D0061097A

PATIENT
  Sex: Female

DRUGS (1)
  1. ELONTRIL [Suspect]
     Dosage: 300MG PER DAY
     Route: 048
     Dates: start: 20080101

REACTIONS (2)
  - BLOOD AMYLASE INCREASED [None]
  - LIPASE INCREASED [None]
